FAERS Safety Report 5565966-5 (Version None)
Quarter: 2007Q4

REPORT INFORMATION
  Report Type: 
  Country: None (occurrence: None)
  Receive Date: 20071219
  Receipt Date: 20071208
  Transmission Date: 20080405
  Serious: Yes (Death, Other)
  Sender: FDA-Public Use
  Company Number: US-JNJFOC-20071204343

PATIENT
  Age: 33 Year
  Sex: Male

DRUGS (2)
  1. FENTANYL [Suspect]
     Indication: DRUG DIVERSION
     Route: 065
  2. HEROIN [Suspect]
     Indication: DRUG USE FOR UNKNOWN INDICATION

REACTIONS (1)
  - DRUG DIVERSION [None]
